FAERS Safety Report 7371750-2 (Version None)
Quarter: 2011Q1

REPORT INFORMATION
  Report Type: 
  Country: None (occurrence: None)
  Receive Date: 20110324
  Receipt Date: 20110310
  Transmission Date: 20110831
  Serious: Yes (Hospitalization, Other)
  Sender: FDA-Public Use
  Company Number: PHHY2010BR61292

PATIENT
  Sex: Female
  Weight: 62 kg

DRUGS (9)
  1. SANDOSTATIN LAR [Suspect]
     Dosage: 30 MG, UNK
  2. HYGROTON [Concomitant]
     Indication: BLOOD PRESSURE
     Dosage: 50 MG, 1 TABLET DAILY
     Route: 048
  3. FUROSEMIDE [Concomitant]
     Dosage: 40 MG, , 1 TABLET IN THE MORNING
     Route: 048
  4. ENALAPRIL MALEATE [Concomitant]
     Indication: HYPERTENSION
     Dosage: 10 MG, 1 TABLET DAILY
     Route: 048
  5. SANDOSTATIN LAR [Suspect]
     Indication: HEPATIC NEOPLASM
     Dosage: 20 MG, EVERY 15 DAYS
  6. ATENOLOL [Concomitant]
     Dosage: 25 UNK, 1 TABLET DAILY
     Route: 048
  7. GABAPENTIN [Concomitant]
     Indication: HYPERTENSION
     Dosage: 300 MG, BID
     Route: 048
  8. SANDOSTATIN [Suspect]
     Indication: HEPATIC NEOPLASM
  9. OXYCONTIN [Concomitant]
     Indication: PROCEDURAL PAIN
     Dosage: 10 MG, 1 TABLET EVERY 12 HOURS
     Route: 048

REACTIONS (10)
  - CARDIAC VALVE DISEASE [None]
  - HEPATIC ENZYME INCREASED [None]
  - ABDOMINAL PAIN [None]
  - SWELLING [None]
  - TRICUSPID VALVE REPLACEMENT [None]
  - MITRAL VALVE REPAIR [None]
  - DRUG INEFFECTIVE [None]
  - INTESTINAL PERFORATION [None]
  - COLOSTOMY [None]
  - PAIN [None]
